FAERS Safety Report 9786371 (Version 2)
Quarter: 2014Q1

REPORT INFORMATION
  Report Type: Spontaneous
  Country: GB (occurrence: GB)
  Receive Date: 20131227
  Receipt Date: 20140131
  Transmission Date: 20141002
  Serious: Yes (Hospitalization, Other)
  Sender: FDA-Public Use
  Company Number: GB-PFIZER INC-2013366666

PATIENT
  Age: 36 Year
  Sex: Female

DRUGS (11)
  1. SULFASALAZINE [Suspect]
     Indication: COLITIS ULCERATIVE
     Dosage: 4.0 G, DAILY
     Route: 048
     Dates: start: 197102, end: 19710621
  2. SULFASALAZINE [Suspect]
     Dosage: 0.5 G
     Route: 048
     Dates: start: 19710901, end: 19710901
  3. SULFASALAZINE [Suspect]
     Dosage: 1 G
     Route: 048
     Dates: start: 19710902, end: 19710902
  4. SULFASALAZINE [Suspect]
     Dosage: 1.5 G
     Route: 048
     Dates: start: 19710903, end: 19710903
  5. SULFASALAZINE [Suspect]
     Dosage: 2 G
     Route: 048
     Dates: start: 19710904, end: 19710904
  6. SULFASALAZINE [Suspect]
     Dosage: 2.5 G
     Route: 048
     Dates: start: 19710905, end: 19710908
  7. SULFASALAZINE [Suspect]
     Dosage: 3 G
     Route: 048
     Dates: start: 19710906, end: 19710906
  8. SULFASALAZINE [Suspect]
     Dosage: 2 G
     Route: 048
     Dates: start: 19710907, end: 19710907
  9. SULFASALAZINE [Suspect]
     Dosage: 3.5 G
     Route: 048
     Dates: start: 19710908, end: 19710909
  10. PROPANTHELINE [Concomitant]
     Indication: COLITIS ULCERATIVE
     Dosage: 15 MG, 3X/DAY
     Dates: start: 197102, end: 19710621
  11. PHENOBARBITONE [Concomitant]
     Indication: COLITIS ULCERATIVE
     Dosage: UNK
     Dates: start: 197102, end: 1971

REACTIONS (2)
  - Lung disorder [Recovered/Resolved]
  - Drug hypersensitivity [Recovered/Resolved]
